FAERS Safety Report 9275621 (Version 1)
Quarter: 2013Q2

REPORT INFORMATION
  Report Type: Report from Study
  Country: CA (occurrence: CA)
  Receive Date: 20130507
  Receipt Date: 20130507
  Transmission Date: 20140414
  Serious: Yes (Other)
  Sender: FDA-Public Use
  Company Number: CA-JNJFOC-20130417327

PATIENT
  Sex: Male

DRUGS (3)
  1. REMICADE [Suspect]
     Indication: CROHN^S DISEASE
     Route: 042
     Dates: start: 20070628
  2. COVERSYL [Concomitant]
     Route: 065
  3. QUARELIN [Concomitant]
     Route: 065

REACTIONS (3)
  - Hernia [Unknown]
  - Scar [Unknown]
  - Pain [Unknown]
